FAERS Safety Report 5038622-X (Version None)
Quarter: 2006Q2

REPORT INFORMATION
  Report Type: 
  Country: None (occurrence: None)
  Receive Date: 20060623
  Receipt Date: 20060608
  Transmission Date: 20061013
  Serious: Yes (Other)
  Sender: FDA-Public Use
  Company Number: 2006057482

PATIENT
  Age: 54 Year
  Sex: Female
  Weight: 75 kg

DRUGS (12)
  1. FLUCONAZOLE [Suspect]
     Indication: OROPHARYNGITIS FUNGAL
     Dosage: 50 MG, ORAL
     Route: 048
     Dates: start: 20060320, end: 20060328
  2. SINTROM [Suspect]
     Indication: ILL-DEFINED DISORDER
     Dosage: (4 MG), ORAL
     Route: 048
     Dates: start: 20060317
  3. BUDESONIDE [Concomitant]
  4. SILOMAT (CLOBUTINOL HYDROCHLORIDE) [Concomitant]
  5. PYOSTACINE (PRISTINAMYCIN) [Concomitant]
  6. SOLUPRED (PREDNISOLONE SODIUM SULFOBENZOATE) [Concomitant]
  7. PIASCLEDINE (PERSEAE OLEUM, SOYA OIL) [Concomitant]
  8. ACTONEL [Concomitant]
  9. PANTOPRAZOLE SODIUM [Concomitant]
  10. GAVISCON [Concomitant]
  11. SODIUM BICARBONATE IN PLASTIC CONTAINER [Concomitant]
  12. INNOHEP [Concomitant]

REACTIONS (4)
  - DRUG INTERACTION [None]
  - HEPATIC STEATOSIS [None]
  - NEUTROPHIL COUNT DECREASED [None]
  - SERUM FERRITIN INCREASED [None]
